FAERS Safety Report 6744195-3 (Version None)
Quarter: 2010Q2

REPORT INFORMATION
  Report Type: 
  Country: None (occurrence: None)
  Receive Date: 20100527
  Receipt Date: 20100520
  Transmission Date: 20101027
  Serious: Yes (Hospitalization, Other)
  Sender: FDA-Public Use
  Company Number: US-ABBOTT-10P-163-0626261-00

PATIENT
  Sex: Female
  Weight: 89.892 kg

DRUGS (8)
  1. HUMIRA [Suspect]
     Indication: RHEUMATOID ARTHRITIS
     Route: 058
     Dates: start: 20080101, end: 20090601
  2. PLAQUENIL [Suspect]
     Indication: RHEUMATOID ARTHRITIS
     Dates: start: 20090101, end: 20090601
  3. VALIUM [Concomitant]
     Indication: MUSCLE SPASMS
  4. DIOVAN HCT [Concomitant]
     Indication: HYPERTENSION
  5. VICODIN [Concomitant]
     Indication: SURGERY
  6. RESCUE INHALER [Concomitant]
     Indication: ASTHMA
  7. NEBULIZER TREATMENT [Concomitant]
     Indication: ASTHMA
  8. NEBULIZER TREATMENT [Concomitant]
     Indication: PULMONARY FIBROSIS

REACTIONS (16)
  - ARTHRALGIA [None]
  - BACK PAIN [None]
  - DISORIENTATION [None]
  - FALL [None]
  - GAIT DISTURBANCE [None]
  - HEAD INJURY [None]
  - INFLAMMATION [None]
  - INJECTION SITE PAIN [None]
  - INTERVERTEBRAL DISC PROTRUSION [None]
  - LUMBAR VERTEBRAL FRACTURE [None]
  - MUSCULOSKELETAL STIFFNESS [None]
  - PRURITUS [None]
  - UNEVALUABLE EVENT [None]
  - UPPER LIMB FRACTURE [None]
  - URTICARIA [None]
  - WRIST FRACTURE [None]
